FAERS Safety Report 17093392 (Version 6)
Quarter: 2020Q2

REPORT INFORMATION
  Report Type: Report from Study
  Country: US (occurrence: US)
  Receive Date: 20191129
  Receipt Date: 20200405
  Transmission Date: 20200713
  Serious: No
  Sender: FDA-Public Use
  Company Number: NVSC2019US048382

PATIENT
  Age: 88 Year
  Sex: Female

DRUGS (3)
  1. BEOVU [Suspect]
     Active Substance: BROLUCIZUMAB-DBLL
     Dosage: (VIAL)
     Route: 047
     Dates: start: 20200110
  2. BEOVU [Suspect]
     Active Substance: BROLUCIZUMAB-DBLL
     Indication: NEOVASCULAR AGE-RELATED MACULAR DEGENERATION
     Dosage: (VIAL)
     Route: 047
     Dates: start: 20191113
  3. BEOVU [Suspect]
     Active Substance: BROLUCIZUMAB-DBLL
     Dosage: (VIAL)
     Route: 047
     Dates: start: 20191211

REACTIONS (4)
  - Lacrimation increased [Recovering/Resolving]
  - Vitreous floaters [Recovered/Resolved]
  - Coagulopathy [Unknown]
  - Concomitant disease aggravated [Unknown]

NARRATIVE: CASE EVENT DATE: 20191113
